FAERS Safety Report 6536480-5 (Version None)
Quarter: 2010Q1

REPORT INFORMATION
  Report Type: 
  Country: None (occurrence: None)
  Receive Date: 20100106
  Receipt Date: 20091222
  Transmission Date: 20100710
  Serious: Yes (Death)
  Sender: FDA-Public Use
  Company Number: ACO_00628_2009

PATIENT
  Age: 60 Year
  Sex: Female

DRUGS (1)
  1. ZANAFLEX [Suspect]
     Indication: MULTIPLE SCLEROSIS
     Dosage: (DF ORAL)
     Route: 048

REACTIONS (2)
  - HEPATIC FAILURE [None]
  - OFF LABEL USE [None]
